FAERS Safety Report 7471097-X (Version None)
Quarter: 2011Q2

REPORT INFORMATION
  Report Type: 
  Country: None (occurrence: None)
  Receive Date: 20110510
  Receipt Date: 20110503
  Transmission Date: 20111010
  Serious: Yes (Hospitalization)
  Sender: FDA-Public Use
  Company Number: BR-BAYER-200911313LA

PATIENT
  Age: 61 Year
  Sex: Female

DRUGS (10)
  1. TETANUS VACCINE [TETANUS VACCINE] [Concomitant]
     Indication: ANIMAL BITE
     Route: 065
  2. RABIES VACCINE [Concomitant]
     Indication: ANIMAL BITE
     Route: 065
  3. AMLODIPINE BESYLATE [Concomitant]
     Indication: HYPERTENSION
     Dosage: 5 MG, QD
  4. BETAFERON [Suspect]
     Dosage: BETAJECT
     Route: 058
     Dates: start: 20090322
  5. BETAFERON [Suspect]
     Indication: PROGRESSIVE MULTIPLE SCLEROSIS
     Dosage: BETAJECT
     Route: 058
     Dates: start: 20040301, end: 20081222
  6. BETAFERON [Suspect]
     Dosage: BETAJECT
     Route: 058
     Dates: start: 20090102, end: 20090115
  7. CEFADROXIL [Concomitant]
     Indication: ANIMAL BITE
     Route: 048
     Dates: start: 20090213, end: 20090220
  8. ACECLOFENAC [Concomitant]
     Indication: ANIMAL BITE
     Route: 048
     Dates: start: 20090213, end: 20090220
  9. OMEPRAZOLE [Concomitant]
     Indication: GASTRIC DISORDER
     Route: 048
     Dates: start: 20090108
  10. ATENOLOL [Concomitant]
     Indication: HYPERTENSION
     Dosage: 25 MG, QD
     Route: 048
     Dates: start: 20081201

REACTIONS (12)
  - INFLAMMATION [None]
  - ARTHRALGIA [None]
  - PAIN IN EXTREMITY [None]
  - HYPERTENSION [None]
  - DYSURIA [None]
  - INJECTION SITE PAIN [None]
  - MULTIPLE SCLEROSIS [None]
  - MOVEMENT DISORDER [None]
  - DEPRESSION [None]
  - GAIT DISTURBANCE [None]
  - GASTRITIS [None]
  - OSTEOARTHRITIS [None]
